FAERS Safety Report 19818180 (Version 1)
Quarter: 2021Q3

REPORT INFORMATION
  Report Type: Spontaneous
  Country: CA (occurrence: CA)
  Receive Date: 20210911
  Receipt Date: 20210911
  Transmission Date: 20211014
  Serious: Yes (Life-Threatening, Hospitalization, Other)
  Sender: FDA-Public Use
  Company Number: CA-TEVA-2021-CA-1950416

PATIENT
  Age: 14 Year
  Sex: Female
  Weight: 63 kg

DRUGS (22)
  1. POLYETHYLENE GLYCOL [Concomitant]
     Active Substance: POLYETHYLENE GLYCOLS
  2. CYTARABINE INJECTION [Suspect]
     Active Substance: CYTARABINE
     Route: 037
  3. LANSOPRAZOLE. [Concomitant]
     Active Substance: LANSOPRAZOLE
  4. PIPERACILLIN/TAZOBACTAM [Concomitant]
     Active Substance: PIPERACILLIN SODIUM\TAZOBACTAM SODIUM
  5. ETOPOSIDE. [Suspect]
     Active Substance: ETOPOSIDE
     Route: 042
  6. LEUPROLIDE [Concomitant]
     Active Substance: LEUPROLIDE
  7. VANCOMYCIN [Concomitant]
     Active Substance: VANCOMYCIN
  8. ZINECARD [Concomitant]
     Active Substance: DEXRAZOXANE HYDROCHLORIDE
  9. DAUNORUBICIN HYDROCHLORIDE FOR INJECTION [Suspect]
     Active Substance: DAUNORUBICIN HYDROCHLORIDE
     Indication: ACUTE MYELOID LEUKAEMIA
     Route: 042
  10. HYDROXYZINE [Concomitant]
     Active Substance: HYDROXYZINE HYDROCHLORIDE
  11. CYTARABINE INJECTION [Suspect]
     Active Substance: CYTARABINE
     Indication: ACUTE MYELOID LEUKAEMIA
     Dosage: 340 MILLIGRAM DAILY;
     Route: 042
  12. CYTARABINE INJECTION [Suspect]
     Active Substance: CYTARABINE
     Dosage: 340 MILLIGRAM DAILY;
     Route: 042
  13. ETOPOSIDE. [Suspect]
     Active Substance: ETOPOSIDE
     Indication: ACUTE MYELOID LEUKAEMIA
     Route: 042
  14. CETIRIZINE [Concomitant]
     Active Substance: CETIRIZINE HYDROCHLORIDE
  15. ALLOPURINOL. [Concomitant]
     Active Substance: ALLOPURINOL
  16. CALCIUM [Concomitant]
     Active Substance: CALCIUM
  17. NORETHINDRONE. [Concomitant]
     Active Substance: NORETHINDRONE
  18. ONDANSETRON [Concomitant]
     Active Substance: ONDANSETRON
  19. DAUNORUBICIN HYDROCHLORIDE FOR INJECTION [Suspect]
     Active Substance: DAUNORUBICIN HYDROCHLORIDE
     Route: 042
  20. ALTEPLASE. [Concomitant]
     Active Substance: ALTEPLASE
  21. MYCAMINE [Concomitant]
     Active Substance: MICAFUNGIN SODIUM
  22. RANITIDINE. [Concomitant]
     Active Substance: RANITIDINE

REACTIONS (1)
  - Aplastic anaemia [Recovered/Resolved]
